FAERS Safety Report 10221242 (Version 1)
Quarter: 2014Q2

REPORT INFORMATION
  Report Type: Spontaneous
  Country: US (occurrence: US)
  Receive Date: 20140606
  Receipt Date: 20140606
  Transmission Date: 20141212
  Serious: No
  Sender: FDA-Public Use
  Company Number: US-GLAXOSMITHKLINE-A1067885A

PATIENT
  Age: 59 Year
  Sex: Female

DRUGS (3)
  1. BREO ELLIPTA [Suspect]
     Indication: CHRONIC OBSTRUCTIVE PULMONARY DISEASE
     Route: 055
     Dates: start: 201402
  2. MULTIVITAMIN [Concomitant]
  3. VITAMINS [Concomitant]

REACTIONS (4)
  - Dysphonia [Recovering/Resolving]
  - Dysphonia [Recovering/Resolving]
  - Wheezing [Recovering/Resolving]
  - Dyspnoea exertional [Recovering/Resolving]
